FAERS Safety Report 7000160-2 (Version None)
Quarter: 2010Q3

REPORT INFORMATION
  Report Type: 
  Country: None (occurrence: None)
  Receive Date: 20100920
  Receipt Date: 20100617
  Transmission Date: 20110219
  Serious: No
  Sender: FDA-Public Use
  Company Number: US-ASTRAZENECA-2009UW00678

PATIENT
  Sex: Female

DRUGS (1)
  1. SEROQUEL [Suspect]
     Dosage: 200 MG TAKE HALF TABLET BY MOUTH TWICE DAILY AND 2 TABLETS BY MOUTH AT BEDTIME
     Route: 048

REACTIONS (4)
  - DRUG DOSE OMISSION [None]
  - NERVOUSNESS [None]
  - NIGHTMARE [None]
  - PANIC ATTACK [None]
